FAERS Safety Report 25542486 (Version 1)
Quarter: 2025Q3

REPORT INFORMATION
  Report Type: Spontaneous
  Country: EU (occurrence: EU)
  Receive Date: 20250711
  Receipt Date: 20250711
  Transmission Date: 20251021
  Serious: Yes (Other)
  Sender: CELLTRION
  Company Number: None

PATIENT

DRUGS (1)
  1. YUFLYMA [Suspect]
     Active Substance: ADALIMUMAB-AATY
     Indication: Axial spondyloarthritis
     Dosage: 40 MG, Q2WEEKS
     Dates: start: 20240416, end: 202502

REACTIONS (2)
  - Renal impairment [Recovered/Resolved]
  - Enzyme abnormality [Recovered/Resolved]

NARRATIVE: CASE EVENT DATE: 20240401
